FAERS Safety Report 20940864 (Version 5)
Quarter: 2022Q3

REPORT INFORMATION
  Report Type: Spontaneous
  Country: US (occurrence: US)
  Receive Date: 20220609
  Receipt Date: 20220922
  Transmission Date: 20221027
  Serious: No
  Sender: FDA-Public Use
  Company Number: US-NOVARTISTESTPH-NVSC2022US131435

PATIENT
  Sex: Male

DRUGS (3)
  1. SWIM-EAR [Suspect]
     Active Substance: ISOPROPYL ALCOHOL
     Indication: Product used for unknown indication
     Dosage: UNK, (FORMULATION: 29.57 ML SOLUTION)
     Route: 065
  2. ASPIRIN [Concomitant]
     Active Substance: ASPIRIN
     Indication: Hypertension
     Dosage: UNK, QD
     Route: 065
  3. UNSPECIFIED INGREDIENT [Concomitant]
     Active Substance: UNSPECIFIED INGREDIENT
     Indication: Blood cholesterol
     Dosage: UNK, QD
     Route: 065

REACTIONS (9)
  - Ear pain [Unknown]
  - Hypoaesthesia oral [Unknown]
  - Hypoacusis [Not Recovered/Not Resolved]
  - Paraesthesia oral [Unknown]
  - Ear discomfort [Unknown]
  - Ageusia [Not Recovered/Not Resolved]
  - Dysstasia [Unknown]
  - Tympanic membrane perforation [Unknown]
  - Ear injury [Unknown]
